FAERS Safety Report 23937798 (Version 1)
Quarter: 2024Q2

REPORT INFORMATION
  Report Type: Spontaneous
  Country: US (occurrence: US)
  Receive Date: 20240604
  Receipt Date: 20240604
  Transmission Date: 20240717
  Serious: No
  Sender: FDA-Public Use
  Company Number: US-AZURITY PHARMACEUTICALS, INC.-US-2024AZR000350

PATIENT
  Sex: Male

DRUGS (1)
  1. TESTOSTERONE CYPIONATE [Suspect]
     Active Substance: TESTOSTERONE CYPIONATE
     Indication: Blood testosterone abnormal
     Dosage: 0.5 ML, Q5D (EVERY 5 DAYS)
     Route: 030
     Dates: start: 20220629

REACTIONS (2)
  - Product dose omission issue [Unknown]
  - Product deposit [Unknown]
